FAERS Safety Report 5720095-2 (Version None)
Quarter: 2008Q2

REPORT INFORMATION
  Report Type: 
  Country: None (occurrence: None)
  Receive Date: 20080428
  Receipt Date: 20080422
  Transmission Date: 20081010
  Serious: Yes (Hospitalization)
  Sender: FDA-Public Use
  Company Number: IT-ASTRAZENECA-2008SE02107

PATIENT
  Age: 27524 Day
  Sex: Male

DRUGS (3)
  1. ANTRA [Suspect]
     Indication: GASTRITIS EROSIVE
     Route: 048
     Dates: start: 20080417, end: 20080420
  2. MOVICOL [Suspect]
     Indication: CONSTIPATION
     Route: 048
     Dates: start: 20080417, end: 20080420
  3. DAONIL [Concomitant]
     Route: 048
     Dates: start: 20030101

REACTIONS (1)
  - ECZEMA [None]
